FAERS Safety Report 5522411-3 (Version None)
Quarter: 2007Q4

REPORT INFORMATION
  Report Type: 
  Country: None (occurrence: None)
  Receive Date: 20071120
  Receipt Date: 20071109
  Transmission Date: 20080405
  Serious: Yes (Hospitalization)
  Sender: FDA-Public Use
  Company Number: US-ELI_LILLY_AND_COMPANY-US200710004350

PATIENT
  Sex: Male
  Weight: 99.773 kg

DRUGS (20)
  1. BYETTA [Suspect]
     Dosage: 5 UG, 2/D
     Route: 058
     Dates: start: 20060101, end: 20060101
  2. BYETTA [Suspect]
     Dosage: 10 UG, 2/D
     Route: 058
     Dates: start: 20060101, end: 20070812
  3. BYETTA [Suspect]
     Dosage: 10 UG, 2/D
     Route: 058
     Dates: start: 20070813
  4. INSULIN [Concomitant]
     Dosage: 32 U, EACH MORNING
     Route: 058
     Dates: end: 20070901
  5. INSULIN [Concomitant]
     Dosage: 32 U, EACH EVENING
     Route: 058
     Dates: end: 20070901
  6. INSULIN [Concomitant]
     Dosage: 38 U, EACH MORNING
     Route: 058
     Dates: start: 20070901
  7. INSULIN [Concomitant]
     Dosage: 35 U, EACH EVENING
     Route: 058
     Dates: start: 20070901
  8. PLAVIX [Concomitant]
     Indication: ANTICOAGULANT THERAPY
     Dosage: 75 MG, DAILY (1/D)
     Route: 048
  9. ASPIRIN [Concomitant]
     Dosage: 325 MG, DAILY (1/D)
     Route: 048
  10. AMITRIPTYLINE [Concomitant]
     Indication: NEUROPATHY
     Dosage: 20 MG, EACH EVENING
     Route: 048
  11. METOPROLOL [Concomitant]
     Dosage: 12.5 MG, 2/D
     Route: 048
  12. NITROGLYCERIN [Concomitant]
     Indication: ANGINA PECTORIS
     Dosage: UNK, AS NEEDED
     Route: 048
  13. SIMVASTATIN [Concomitant]
     Dosage: 20 MG, EACH EVENING
     Route: 048
  14. LASIX [Concomitant]
     Dosage: 20 MG, EACH MORNING
     Route: 048
  15. LISINOPRIL [Concomitant]
     Dosage: 10 MG, DAILY (1/D)
     Route: 048
  16. NYSTATIN [Concomitant]
     Dosage: UNK, UNKNOWN
  17. OMEPRAZOLE [Concomitant]
     Dosage: 20 MG, DAILY (1/D)
     Route: 048
  18. METFORMIN HYDROCHLORIDE [Concomitant]
     Dosage: 1000 MG, 2/D
     Route: 048
  19. FINASTERIDE [Concomitant]
     Dosage: 5 MG, DAILY (1/D)
     Route: 048
  20. VITAMIN B-12 [Concomitant]
     Dosage: 200 MG, DAILY (1/D)
     Route: 048

REACTIONS (17)
  - ABDOMINAL PAIN LOWER [None]
  - ABDOMINAL PAIN UPPER [None]
  - ALANINE AMINOTRANSFERASE INCREASED [None]
  - ASPARTATE AMINOTRANSFERASE INCREASED [None]
  - BLOOD BILIRUBIN INCREASED [None]
  - BLOOD CALCIUM INCREASED [None]
  - BLOOD GLUCOSE INCREASED [None]
  - BLOOD TRIGLYCERIDES INCREASED [None]
  - HAEMATOCRIT DECREASED [None]
  - HAEMOGLOBIN DECREASED [None]
  - HIGH DENSITY LIPOPROTEIN DECREASED [None]
  - LYMPHOCYTE COUNT DECREASED [None]
  - MEAN CELL HAEMOGLOBIN CONCENTRATION DECREASED [None]
  - MONOCYTE COUNT INCREASED [None]
  - NAUSEA [None]
  - PANCREATIC DISORDER [None]
  - RED BLOOD CELL COUNT DECREASED [None]
